FAERS Safety Report 12350031 (Version 1)
Quarter: 2016Q2

REPORT INFORMATION
  Report Type: Spontaneous
  Country: US (occurrence: None)
  Receive Date: 20160509
  Receipt Date: 20160509
  Transmission Date: 20160815
  Serious: No
  Sender: FDA-Public Use
  Company Number: None

PATIENT
  Age: 77 Year
  Sex: Male
  Weight: 83.46 kg

DRUGS (16)
  1. AMANTADINE [Concomitant]
     Active Substance: AMANTADINE
  2. MONTELUKAST [Concomitant]
     Active Substance: MONTELUKAST SODIUM
  3. POTASSIUM GLUCONATE [Concomitant]
     Active Substance: POTASSIUM GLUCONATE
  4. FIBER COMPLETE [Concomitant]
  5. ADVAIR DISKUS [Concomitant]
     Active Substance: FLUTICASONE PROPIONATE\SALMETEROL XINAFOATE
  6. THEOPHYLLINE ER [Concomitant]
     Active Substance: THEOPHYLLINE ANHYDROUS
  7. DUONEB [Concomitant]
     Active Substance: ALBUTEROL SULFATE\IPRATROPIUM BROMIDE
  8. STOOL SOFTNER [Concomitant]
     Active Substance: DOCUSATE SODIUM
  9. NYSTATIN. [Concomitant]
     Active Substance: NYSTATIN
  10. LASIK [Concomitant]
     Active Substance: FUROSEMIDE\POTASSIUM CHLORIDE
  11. OMEPRAZOLE DR [Concomitant]
     Active Substance: OMEPRAZOLE
  12. ASPIRIN. [Concomitant]
     Active Substance: ASPIRIN
  13. DILTIAZEM [Concomitant]
     Active Substance: DILTIAZEM
  14. FLUTICASONE PROPIONATE. [Concomitant]
     Active Substance: FLUTICASONE PROPIONATE
  15. SPIRIVA [Suspect]
     Active Substance: TIOTROPIUM BROMIDE MONOHYDRATE
     Indication: CHRONIC OBSTRUCTIVE PULMONARY DISEASE
     Route: 048
     Dates: start: 20160502, end: 20160507
  16. MAGNESIUM [Concomitant]
     Active Substance: MAGNESIUM

REACTIONS (7)
  - Heart rate increased [None]
  - Dyspepsia [None]
  - Cough [None]
  - Constipation [None]
  - Sinusitis [None]
  - Paranasal sinus discomfort [None]
  - Rhinorrhoea [None]

NARRATIVE: CASE EVENT DATE: 20160506
